FAERS Safety Report 9995312 (Version 1)
Quarter: 2014Q1

REPORT INFORMATION
  Report Type: Spontaneous
  Country: US (occurrence: US)
  Receive Date: 20140311
  Receipt Date: 20140311
  Transmission Date: 20141002
  Serious: Yes (Hospitalization)
  Sender: FDA-Public Use
  Company Number: US-ASTELLAS-2014US002332

PATIENT
  Sex: Female

DRUGS (2)
  1. PROGRAF [Suspect]
     Indication: LUNG TRANSPLANT
     Dosage: 3 MG, UID/QD (1MG A.M./2MG P.M.)
     Route: 048
     Dates: start: 20130502
  2. PROGRAF [Suspect]
     Indication: BRONCHIECTASIS

REACTIONS (2)
  - Off label use [Unknown]
  - Investigation [Recovered/Resolved]
